FAERS Safety Report 5456616-7 (Version None)
Quarter: 2007Q3

REPORT INFORMATION
  Report Type: 
  Country: None (occurrence: None)
  Receive Date: 20070917
  Receipt Date: 20070917
  Transmission Date: 20080115
  Serious: Yes (Other)
  Sender: FDA-Public Use
  Company Number: None

PATIENT
  Age: 59 Year
  Sex: Male
  Weight: 88.905 kg

DRUGS (2)
  1. TOPAMAX [Suspect]
     Dosage: 100MG QAM/2000MG QHS BID ORAL
     Route: 048
     Dates: start: 20070705, end: 20070815
  2. LORATADINE [Suspect]
     Dosage: 20-25MG QHS ORAL
     Route: 048

REACTIONS (10)
  - ABNORMAL DREAMS [None]
  - BALANCE DISORDER [None]
  - DIZZINESS [None]
  - DRUG INTERACTION [None]
  - DRY MOUTH [None]
  - FATIGUE [None]
  - HYPOKALAEMIA [None]
  - MEMORY IMPAIRMENT [None]
  - NEUROPSYCHOLOGICAL TEST ABNORMAL [None]
  - VISION BLURRED [None]
